FAERS Safety Report 9177970 (Version 3)
Quarter: 2013Q2

REPORT INFORMATION
  Report Type: Report from Study
  Country: US (occurrence: US)
  Receive Date: 20130321
  Receipt Date: 20130409
  Transmission Date: 20140414
  Serious: Yes (Other)
  Sender: FDA-Public Use
  Company Number: US-JNJFOC-20130310700

PATIENT
  Age: 22 Month
  Sex: Female

DRUGS (1)
  1. NUCYNTA IR [Suspect]
     Indication: ACCIDENTAL EXPOSURE TO PRODUCT
     Dosage: @ 16: 46, INGESTED HALF TABLET OF 75 MG (37.5MG)
     Route: 048
     Dates: start: 20120831

REACTIONS (10)
  - Accidental exposure to product [Recovering/Resolving]
  - Toxicity to various agents [Recovering/Resolving]
  - Depressed level of consciousness [Recovering/Resolving]
  - Heart rate decreased [Recovering/Resolving]
  - Respiratory depression [Recovering/Resolving]
  - Fatigue [Recovering/Resolving]
  - Hyperhidrosis [Recovering/Resolving]
  - Dizziness [Recovering/Resolving]
  - Vomiting [Recovering/Resolving]
  - Nausea [Recovering/Resolving]
